FAERS Safety Report 25813814 (Version 1)
Quarter: 2025Q3

REPORT INFORMATION
  Report Type: Spontaneous
  Country: US (occurrence: None)
  Receive Date: 20250917
  Receipt Date: 20250917
  Transmission Date: 20251021
  Serious: Yes (Other)
  Sender: FDA-CTU
  Company Number: None

PATIENT
  Age: 31 Year
  Sex: Male
  Weight: 65.77 kg

DRUGS (1)
  1. .DELTA.8-TETRAHYDROCANNABINOL\HERBALS [Suspect]
     Active Substance: .DELTA.8-TETRAHYDROCANNABINOL\HERBALS

REACTIONS (6)
  - Product taste abnormal [None]
  - Product odour abnormal [None]
  - Hypoaesthesia [None]
  - Hypoaesthesia oral [None]
  - Suspected product contamination [None]
  - Product colour issue [None]

NARRATIVE: CASE EVENT DATE: 20250101
